FAERS Safety Report 18723624 (Version 1)
Quarter: 2021Q1

REPORT INFORMATION
  Report Type: Spontaneous
  Country: US (occurrence: US)
  Receive Date: 20210108
  Receipt Date: 20210108
  Transmission Date: 20210419
  Serious: Yes (Other)
  Sender: FDA-Public Use
  Company Number: None

PATIENT
  Age: 46 Year
  Sex: Female
  Weight: 59.85 kg

DRUGS (7)
  1. VITAMIN C [Concomitant]
     Active Substance: ASCORBIC ACID
  2. NAPROXEN. [Concomitant]
     Active Substance: NAPROXEN
  3. ALBUTEROL INHALER [Concomitant]
     Active Substance: ALBUTEROL
  4. VITAMIN D3 [Concomitant]
     Active Substance: CHOLECALCIFEROL
  5. ADVAIR HFA [Concomitant]
     Active Substance: FLUTICASONE PROPIONATE\SALMETEROL XINAFOATE
  6. VYLEESI [Suspect]
     Active Substance: BREMELANOTIDE ACETATE
     Indication: LOSS OF LIBIDO
     Dosage: ?          QUANTITY:1 INJECTION(S);OTHER FREQUENCY:MAXIMUM 8X PER MO.;?
     Route: 030
     Dates: start: 20200710, end: 20200710
  7. IBUPROFEN. [Concomitant]
     Active Substance: IBUPROFEN

REACTIONS (1)
  - Chloasma [None]

NARRATIVE: CASE EVENT DATE: 20200710
